FAERS Safety Report 16056711 (Version 1)
Quarter: 2019Q2

REPORT INFORMATION
  Report Type: Spontaneous
  Country: US (occurrence: US)
  Receive Date: 20190310
  Receipt Date: 20190310
  Transmission Date: 20190711
  Serious: No
  Sender: FDA-Public Use
  Company Number: None

PATIENT
  Age: 40 Year
  Sex: Female
  Weight: 83.25 kg

DRUGS (4)
  1. NORTRIPTYLINE HCL 25MG [Suspect]
     Active Substance: NORTRIPTYLINE HYDROCHLORIDE
     Indication: MIGRAINE
     Dosage: ?          QUANTITY:1 CAPSULE(S);?
     Route: 048
     Dates: start: 20180930, end: 20190210
  2. NORTRIPTYLINE CAPS 25MG [Suspect]
     Active Substance: NORTRIPTYLINE HYDROCHLORIDE
     Indication: MIGRAINE
     Dosage: ?          QUANTITY:1 CAPSULE(S);?
     Route: 048
     Dates: start: 20190210, end: 20190308
  3. NORTRIPTYLINE CAPS 25MG [Suspect]
     Active Substance: NORTRIPTYLINE HYDROCHLORIDE
     Indication: NEURALGIA
     Dosage: ?          QUANTITY:1 CAPSULE(S);?
     Route: 048
     Dates: start: 20190210, end: 20190308
  4. NORTRIPTYLINE HCL 25MG [Suspect]
     Active Substance: NORTRIPTYLINE HYDROCHLORIDE
     Indication: NEURALGIA
     Dosage: ?          QUANTITY:1 CAPSULE(S);?
     Route: 048
     Dates: start: 20180930, end: 20190210

REACTIONS (7)
  - Product substitution issue [None]
  - Breast swelling [None]
  - Bladder pain [None]
  - Breast pain [None]
  - Uterine pain [None]
  - Anorgasmia [None]
  - Dysuria [None]

NARRATIVE: CASE EVENT DATE: 20180301
